FAERS Safety Report 20454032 (Version 1)
Quarter: 2022Q1

REPORT INFORMATION
  Report Type: Report from Study
  Country: US (occurrence: US)
  Receive Date: 20220210
  Receipt Date: 20220210
  Transmission Date: 20220423
  Serious: No
  Sender: FDA-Public Use
  Company Number: US-NOVARTISTESTPH-NVSC2022US028781

PATIENT
  Sex: Male

DRUGS (1)
  1. ARZERRA [Suspect]
     Active Substance: OFATUMUMAB
     Indication: Product used for unknown indication
     Dosage: 2000 MG, QW
     Route: 042
     Dates: start: 20220125

REACTIONS (2)
  - Chills [Recovered/Resolved]
  - Pruritus [Recovered/Resolved]
